FAERS Safety Report 5751605-7 (Version None)
Quarter: 2008Q2

REPORT INFORMATION
  Report Type: 
  Country: None (occurrence: None)
  Receive Date: 20080528
  Receipt Date: 20080519
  Transmission Date: 20081010
  Serious: Yes (Other)
  Sender: FDA-Public Use
  Company Number: PHNU2008DE01517

PATIENT
  Sex: Female

DRUGS (9)
  1. ZOMETA [Suspect]
     Indication: METASTASES TO BONE
     Dosage: 4 MG, QMO
     Route: 042
     Dates: start: 20070801, end: 20071101
  2. CARBOPLATIN [Concomitant]
  3. ETOPOSIDE [Concomitant]
  4. ASPIRIN [Concomitant]
     Dosage: 100 MG, QD
     Route: 048
  5. CARMEN [Concomitant]
     Dosage: 10 MG, QD
  6. LISINOPRIL [Concomitant]
     Dosage: 20 MG, QD
  7. GLYBURIDE [Concomitant]
     Dosage: 3.5 MG, QD
  8. OBSIDAN [Concomitant]
     Dosage: 40 MG, QD
  9. FENTANYL-100 [Concomitant]
     Dosage: 30 EVERY 3 DAYS

REACTIONS (7)
  - BIOPSY [None]
  - OSTEOMYELITIS [None]
  - OSTEONECROSIS [None]
  - OSTEOTOMY [None]
  - PRIMARY SEQUESTRUM [None]
  - SEQUESTRECTOMY [None]
  - WOUND CLOSURE [None]
